FAERS Safety Report 13008093 (Version 2)
Quarter: 2017Q1

REPORT INFORMATION
  Report Type: Report from Study
  Country: US (occurrence: US)
  Receive Date: 20161208
  Receipt Date: 20170321
  Transmission Date: 20170428
  Serious: No
  Sender: FDA-Public Use
  Company Number: US-009507513-1611USA012126

PATIENT
  Age: 18 Year
  Sex: Female
  Weight: 82.09 kg

DRUGS (1)
  1. NEXPLANON [Suspect]
     Active Substance: ETONOGESTREL
     Dosage: UNK
     Route: 059
     Dates: start: 20160518

REACTIONS (3)
  - Device breakage [Not Recovered/Not Resolved]
  - Implant site irritation [Unknown]
  - Implant site pain [Unknown]

NARRATIVE: CASE EVENT DATE: 201611
